FAERS Safety Report 21933485 (Version 1)
Quarter: 2023Q1

REPORT INFORMATION
  Report Type: Spontaneous
  Country: CA (occurrence: CA)
  Receive Date: 20230201
  Receipt Date: 20230201
  Transmission Date: 20230417
  Serious: Yes (Hospitalization)
  Sender: FDA-Public Use
  Company Number: CA-SLATE RUN PHARMACEUTICALS-23CA001491

PATIENT

DRUGS (7)
  1. VANCOMYCIN HYDROCHLORIDE [Suspect]
     Active Substance: VANCOMYCIN HYDROCHLORIDE
     Indication: Evidence based treatment
     Dosage: UNK
  2. HEPARIN [Concomitant]
     Active Substance: HEPARIN SODIUM
     Indication: Thrombosis prophylaxis
  3. ASPIRIN [Concomitant]
     Active Substance: ASPIRIN
     Indication: Thrombosis prophylaxis
  4. ASPIRIN [Concomitant]
     Active Substance: ASPIRIN
     Indication: Prophylaxis
  5. GENTAMICIN [Concomitant]
     Active Substance: GENTAMICIN
     Indication: Evidence based treatment
  6. BETAMETHASONE [Concomitant]
     Active Substance: BETAMETHASONE
     Indication: Maternal therapy to enhance foetal lung maturity
  7. MAGNESIUM SULFATE [Concomitant]
     Active Substance: MAGNESIUM SULFATE
     Indication: Nervous system disorder prophylaxis

REACTIONS (3)
  - Premature baby [Unknown]
  - Low birth weight baby [Unknown]
  - Foetal exposure during pregnancy [Unknown]
